FAERS Safety Report 6669320-4 (Version None)
Quarter: 2010Q2

REPORT INFORMATION
  Report Type: 
  Country: None (occurrence: None)
  Receive Date: 20100402
  Receipt Date: 20100326
  Transmission Date: 20101027
  Serious: Yes (Hospitalization)
  Sender: FDA-Public Use
  Company Number: 9039997-2010-00008

PATIENT
  Age: 83 Year
  Sex: Male

DRUGS (1)
  1. LEVULAN [Suspect]
     Indication: ACTINIC KERATOSIS
     Dosage: 20%, ONCE, TOPICAL
     Route: 061
     Dates: start: 20100317

REACTIONS (1)
  - APPLICATION SITE CELLULITIS [None]
